FAERS Safety Report 11826490 (Version 1)
Quarter: 2015Q4

REPORT INFORMATION
  Report Type: Spontaneous
  Country: CN (occurrence: CN)
  Receive Date: 20151211
  Receipt Date: 20151211
  Transmission Date: 20160305
  Serious: Yes (Other)
  Sender: FDA-Public Use
  Company Number: CN-MYLANLABS-2015M1044261

PATIENT

DRUGS (7)
  1. DEXAMETHASONE. [Suspect]
     Active Substance: DEXAMETHASONE
     Indication: RECTAL ADENOCARCINOMA
     Dosage: 6MG ON DAYS 1 - 3
     Route: 042
  2. GLYCYRRHIZINATE POTASSIUM [Suspect]
     Active Substance: GLYCYRRHIZIN
     Indication: RECTAL ADENOCARCINOMA
     Route: 065
  3. ONDANSETRON [Concomitant]
     Active Substance: ONDANSETRON
     Indication: RECTAL ADENOCARCINOMA
     Route: 065
  4. FLUOROURACIL. [Suspect]
     Active Substance: FLUOROURACIL
     Indication: RECTAL ADENOCARCINOMA
     Dosage: 0.5G ON DAY 1; CYCLICAL
     Route: 042
  5. FOLINIC ACID [Suspect]
     Active Substance: LEUCOVORIN
     Indication: RECTAL ADENOCARCINOMA
     Dosage: 0.2G ON DAYS 1 - 3; CYCLICAL
     Route: 042
  6. FLUOROURACIL. [Suspect]
     Active Substance: FLUOROURACIL
     Dosage: 3.25 FOR 48 HOURS; CYCLICAL
     Route: 050
  7. OXALIPLATIN. [Suspect]
     Active Substance: OXALIPLATIN
     Indication: RECTAL ADENOCARCINOMA
     Dosage: 130MG ON DAY 1; CYCLICAL
     Route: 050

REACTIONS (1)
  - Diabetes mellitus [Recovered/Resolved]
